FAERS Safety Report 5819763-3 (Version None)
Quarter: 2008Q3

REPORT INFORMATION
  Report Type: 
  Country: None (occurrence: None)
  Receive Date: 20080723
  Receipt Date: 20080714
  Transmission Date: 20090109
  Serious: Yes (Other)
  Sender: FDA-Public Use
  Company Number: US-PFIZER INC-2008058417

PATIENT
  Sex: Female
  Weight: 68.181 kg

DRUGS (4)
  1. NORVASC [Suspect]
     Indication: HYPERTENSION
  2. AMLODIPINE [Suspect]
     Indication: HYPERTENSION
  3. ARMOUR THYROID [Concomitant]
  4. LEVOXYL [Concomitant]

REACTIONS (5)
  - BLOOD PRESSURE INADEQUATELY CONTROLLED [None]
  - LIP SWELLING [None]
  - OROPHARYNGEAL BLISTERING [None]
  - PNEUMONIA [None]
  - SWELLING FACE [None]
